FAERS Safety Report 9825747 (Version 3)
Quarter: 2014Q1

REPORT INFORMATION
  Report Type: Report from Study
  Country: US (occurrence: US)
  Receive Date: 20140117
  Receipt Date: 20140318
  Transmission Date: 20141002
  Serious: Yes (Hospitalization)
  Sender: FDA-Public Use
  Company Number: US-NAPPMUNDI-USA-2014-0110286

PATIENT
  Age: 32 Year
  Sex: Female

DRUGS (1)
  1. OXY CR TAB [Suspect]
     Indication: PRODUCT USED FOR UNKNOWN INDICATION
     Dosage: 80 MG, Q8H
     Route: 048

REACTIONS (2)
  - Hysterectomy [Recovered/Resolved]
  - Abdominal operation [Recovered/Resolved]
